FAERS Safety Report 15356933 (Version 1)
Quarter: 2018Q3

REPORT INFORMATION
  Report Type: Other
  Country: DE (occurrence: DE)
  Receive Date: 20180906
  Receipt Date: 20180906
  Transmission Date: 20181010
  Serious: Yes (Other)
  Sender: FDA-Public Use
  Company Number: DE-MACLEODS PHARMACEUTICALS US LTD-MAC2018016516

PATIENT

DRUGS (2)
  1. LEVOFLOXACIN. [Suspect]
     Active Substance: LEVOFLOXACIN
     Indication: PROSTATITIS
     Dosage: UNK, 2X500MG FIVE DAYS, THEN1X500MG
     Route: 048
     Dates: start: 20170112
  2. LEVOFLOXACIN. [Suspect]
     Active Substance: LEVOFLOXACIN
     Indication: UROSEPSIS

REACTIONS (7)
  - Muscle rupture [Recovered/Resolved]
  - Tendon rupture [Recovered/Resolved]
  - Tendon pain [Recovered/Resolved]
  - Plantar fasciitis [Recovered/Resolved]
  - Muscle rupture [Recovered/Resolved]
  - Depression [Recovered/Resolved]
  - Tendon rupture [Recovered/Resolved]

NARRATIVE: CASE EVENT DATE: 20170115
